FAERS Safety Report 13495471 (Version 1)
Quarter: 2017Q2

REPORT INFORMATION
  Report Type: Spontaneous
  Country: US (occurrence: US)
  Receive Date: 20170427
  Receipt Date: 20170427
  Transmission Date: 20170830
  Serious: No
  Sender: FDA-Public Use
  Company Number: None

PATIENT
  Sex: Female

DRUGS (1)
  1. SUTENT [Suspect]
     Active Substance: SUNITINIB MALATE
     Indication: RENAL CANCER
     Dosage: 50MG ONCE DAILY FOR 28 DAYS AND 14 DAYS OFF BY MOUTH
     Route: 048
     Dates: start: 20170317, end: 20170424

REACTIONS (4)
  - Fatigue [None]
  - Contusion [None]
  - Dysgeusia [None]
  - Stomatitis [None]
